FAERS Safety Report 24433168 (Version 1)
Quarter: 2024Q4

REPORT INFORMATION
  Report Type: Spontaneous
  Country: US (occurrence: US)
  Receive Date: 20241014
  Receipt Date: 20241014
  Transmission Date: 20250114
  Serious: Yes (Other)
  Sender: AMGEN
  Company Number: US-AMGEN-USASP2024201505

PATIENT
  Age: 84 Year
  Sex: Female

DRUGS (1)
  1. EVENITY [Suspect]
     Active Substance: ROMOSOZUMAB-AQQG
     Indication: Product used for unknown indication
     Dosage: 210 MILLIGRAM, HAD TAKEN 8 DOSES
     Route: 058

REACTIONS (3)
  - Lung neoplasm malignant [Unknown]
  - Transient ischaemic attack [Unknown]
  - Hypertension [Not Recovered/Not Resolved]
